FAERS Safety Report 12081401 (Version 2)
Quarter: 2016Q1

REPORT INFORMATION
  Report Type: Spontaneous
  Country: JP (occurrence: JP)
  Receive Date: 20160216
  Receipt Date: 20160316
  Transmission Date: 20160526
  Serious: Yes (Other)
  Sender: FDA-Public Use
  Company Number: JP-EISAI MEDICAL RESEARCH-EC-2016-014345

PATIENT
  Age: 64 Year
  Sex: Male

DRUGS (4)
  1. LENVIMA [Suspect]
     Active Substance: LENVATINIB
     Indication: MEDULLARY THYROID CANCER
     Route: 048
     Dates: start: 20160113, end: 20160124
  2. LENVIMA [Suspect]
     Active Substance: LENVATINIB
     Route: 048
     Dates: start: 20160126
  3. INSULIN [Concomitant]
     Active Substance: INSULIN NOS
     Indication: HYPERGLYCAEMIA
     Dosage: UNKNOWN
     Route: 058
     Dates: end: 20160126
  4. INSULIN [Concomitant]
     Active Substance: INSULIN NOS
     Dosage: DOSE REDUCED
     Route: 058
     Dates: start: 20160127

REACTIONS (1)
  - Hypoglycaemic coma [Recovered/Resolved]

NARRATIVE: CASE EVENT DATE: 20160124
